FAERS Safety Report 5167701-1 (Version None)
Quarter: 2006Q4

REPORT INFORMATION
  Report Type: 
  Country: None (occurrence: None)
  Receive Date: 20061204
  Receipt Date: 20061204
  Transmission Date: 20070319
  Serious: Yes (Hospitalization)
  Sender: FDA-Public Use
  Company Number: None

PATIENT
  Age: 77 Year
  Weight: 77 kg

DRUGS (1)
  1. LINEZOLID [Suspect]
     Indication: INFECTION
     Dosage: 600MG  BID  PO
     Route: 048

REACTIONS (1)
  - THROMBOCYTOPENIA [None]
